FAERS Safety Report 13502601 (Version 3)
Quarter: 2017Q2

REPORT INFORMATION
  Report Type: Spontaneous
  Country: US (occurrence: AU)
  Receive Date: 20170502
  Receipt Date: 20170630
  Transmission Date: 20170830
  Serious: Yes (Hospitalization)
  Sender: FDA-Public Use
  Company Number: US-SUNOVION-2017SUN001862

PATIENT
  Sex: Female
  Weight: 62 kg

DRUGS (4)
  1. SPIRIVA [Suspect]
     Active Substance: TIOTROPIUM BROMIDE MONOHYDRATE
     Indication: CHRONIC OBSTRUCTIVE PULMONARY DISEASE
     Route: 065
  2. CADUET [Concomitant]
     Active Substance: AMLODIPINE BESYLATE\ATORVASTATIN CALCIUM
     Dosage: UNK
  3. INDACATEROL [Suspect]
     Active Substance: INDACATEROL
     Indication: CHRONIC OBSTRUCTIVE PULMONARY DISEASE
     Route: 065
  4. INDACATEROL [Suspect]
     Active Substance: INDACATEROL
     Indication: ASTHMA

REACTIONS (4)
  - Renal failure [Not Recovered/Not Resolved]
  - Product use in unapproved indication [Unknown]
  - Coronary artery disease [Not Recovered/Not Resolved]
  - Wrong technique in product usage process [Unknown]
